FAERS Safety Report 20495387 (Version 1)
Quarter: 2022Q1

REPORT INFORMATION
  Report Type: Spontaneous
  Country: IN (occurrence: IN)
  Receive Date: 20220221
  Receipt Date: 20220221
  Transmission Date: 20220423
  Serious: Yes (Death)
  Sender: FDA-Public Use
  Company Number: IN-PFIZER INC-2020003618

PATIENT
  Age: 53 Year
  Sex: Female
  Weight: 79 kg

DRUGS (1)
  1. SUTENT [Suspect]
     Active Substance: SUNITINIB MALATE
     Indication: Metastatic renal cell carcinoma
     Dosage: 25 MG, CYCLIC (ONCE A DAY, 2 WEEKS ON AND 1 WEEK OFF)
     Route: 048
     Dates: start: 20181023, end: 202111

REACTIONS (1)
  - Death [Fatal]

NARRATIVE: CASE EVENT DATE: 20211103
